FAERS Safety Report 23848591 (Version 1)
Quarter: 2024Q2

REPORT INFORMATION
  Report Type: Spontaneous
  Country: US (occurrence: None)
  Receive Date: 20240511
  Receipt Date: 20240511
  Transmission Date: 20240716
  Serious: Yes (Hospitalization)
  Sender: FDA-Public Use
  Company Number: None

PATIENT
  Age: 58 Year
  Sex: Male

DRUGS (1)
  1. HEPARIN SODIUM [Suspect]
     Active Substance: HEPARIN SODIUM
     Indication: Pulmonary embolism
     Dates: start: 20210209, end: 20210218

REACTIONS (3)
  - Heparin-induced thrombocytopenia [None]
  - Heparin-induced thrombocytopenia test [None]
  - Therapy cessation [None]

NARRATIVE: CASE EVENT DATE: 20210219
